FAERS Safety Report 6163192-2 (Version None)
Quarter: 2009Q2

REPORT INFORMATION
  Report Type: 
  Country: None (occurrence: None)
  Receive Date: 20090420
  Receipt Date: 20090420
  Transmission Date: 20091009
  Serious: No
  Sender: FDA-Public Use
  Company Number: None

PATIENT
  Age: 57 Year
  Sex: Male
  Weight: 94.1 kg

DRUGS (2)
  1. PIPERACILLIN SODIUM AND TAZOBACTAM SODIUM [Suspect]
     Indication: INFECTION
     Dosage: 4.5 GM TID IV
     Route: 042
     Dates: start: 20090108, end: 20090203
  2. PIPERACILLIN SODIUM AND TAZOBACTAM SODIUM [Suspect]
     Indication: SURGERY
     Dosage: 4.5 GM TID IV
     Route: 042
     Dates: start: 20090108, end: 20090203

REACTIONS (2)
  - BACTERIA STOOL IDENTIFIED [None]
  - CLOSTRIDIAL INFECTION [None]
